FAERS Safety Report 23637530 (Version 1)
Quarter: 2024Q1

REPORT INFORMATION
  Report Type: Spontaneous
  Country: US (occurrence: US)
  Receive Date: 20240315
  Receipt Date: 20240315
  Transmission Date: 20240410
  Serious: No
  Sender: FDA-Public Use
  Company Number: US-SA-SAC20240308000582

PATIENT
  Sex: Female

DRUGS (10)
  1. DUPIXENT [Suspect]
     Active Substance: DUPILUMAB
     Indication: Asthma
     Dosage: 200 MG, QOW
     Route: 058
  2. ARNUITY ELLIPTA [Concomitant]
     Active Substance: FLUTICASONE FUROATE
  3. ENALAPRIL MALEATE [Concomitant]
     Active Substance: ENALAPRIL MALEATE
  4. ESCITALOPRAM [Concomitant]
     Active Substance: ESCITALOPRAM OXALATE
  5. GABAPENTIN [Concomitant]
     Active Substance: GABAPENTIN
  6. CYCLOBENZAPRINE [Concomitant]
     Active Substance: CYCLOBENZAPRINE
  7. LEFLUNOMIDE [Concomitant]
     Active Substance: LEFLUNOMIDE
  8. METOPROLOL SUCCINATE [Concomitant]
     Active Substance: METOPROLOL SUCCINATE
  9. MONTELUKAST [Concomitant]
     Active Substance: MONTELUKAST SODIUM
  10. TRAMADOL HCL [Concomitant]
     Active Substance: TRAMADOL HYDROCHLORIDE

REACTIONS (2)
  - Depression [Unknown]
  - Upper respiratory tract infection [Unknown]
